FAERS Safety Report 25997184 (Version 1)
Quarter: 2025Q4

REPORT INFORMATION
  Report Type: Spontaneous
  Country: EU (occurrence: EU)
  Receive Date: 20251104
  Receipt Date: 20251104
  Transmission Date: 20260118
  Serious: Yes (Life-Threatening)
  Sender: NOVO NORDISK
  Company Number: None

PATIENT
  Age: 52 Year
  Sex: Male
  Weight: 150 kg

DRUGS (1)
  1. OZEMPIC [Suspect]
     Active Substance: SEMAGLUTIDE
     Indication: Type 2 diabetes mellitus
     Dosage: 0.25 MG, QW
     Route: 058

REACTIONS (2)
  - Dyspnoea [Recovered/Resolved]
  - Dyspnoea [Recovered/Resolved]

NARRATIVE: CASE EVENT DATE: 20220418
